FAERS Safety Report 12255595 (Version 1)
Quarter: 2016Q2

REPORT INFORMATION
  Report Type: Spontaneous
  Country: US (occurrence: US)
  Receive Date: 20160412
  Receipt Date: 20160412
  Transmission Date: 20160815
  Serious: Yes (Death, Other)
  Sender: FDA-Public Use
  Company Number: US-CIPLA LTD.-2016US03626

PATIENT

DRUGS (2)
  1. VINCRISTINE [Suspect]
     Active Substance: VINCRISTINE
     Indication: BRAIN NEOPLASM
     Dosage: UNK
     Route: 065
  2. CARBOPLATIN. [Suspect]
     Active Substance: CARBOPLATIN
     Indication: BRAIN NEOPLASM
     Dosage: UNK
     Route: 065

REACTIONS (7)
  - Haemolytic anaemia [Unknown]
  - Brain death [Fatal]
  - Chills [Unknown]
  - Abdominal pain [Unknown]
  - Multiple organ dysfunction syndrome [Fatal]
  - Diarrhoea [Unknown]
  - Tachypnoea [Unknown]
